FAERS Safety Report 7314020-0 (Version None)
Quarter: 2011Q1

REPORT INFORMATION
  Report Type: 
  Country: None (occurrence: None)
  Receive Date: 20110225
  Receipt Date: 20110216
  Transmission Date: 20110831
  Serious: Yes (Hospitalization)
  Sender: FDA-Public Use
  Company Number: DE-JNJFOC-20110205634

PATIENT
  Age: 43 Year
  Sex: Male

DRUGS (5)
  1. SIMPONI [Suspect]
     Route: 058
  2. SIMPONI [Suspect]
     Indication: ARTHRITIS
     Route: 058
  3. SIMPONI [Suspect]
     Route: 058
  4. SIMPONI [Suspect]
     Indication: SPONDYLITIS
     Route: 058
  5. DIHYDROCODEINE BITARTRATE INJ [Concomitant]
     Route: 048

REACTIONS (10)
  - SYNCOPE [None]
  - GAIT DISTURBANCE [None]
  - INFLUENZA LIKE ILLNESS [None]
  - AGITATION [None]
  - NAUSEA [None]
  - VISUAL IMPAIRMENT [None]
  - DYSPNOEA [None]
  - SLEEP DISORDER [None]
  - HYPERTENSION [None]
  - DIZZINESS [None]
